FAERS Safety Report 8002275-9 (Version None)
Quarter: 2011Q4

REPORT INFORMATION
  Report Type: 
  Country: None (occurrence: None)
  Receive Date: 20111222
  Receipt Date: 20110216
  Transmission Date: 20120403
  Serious: No
  Sender: FDA-Public Use
  Company Number: US-GLAXOSMITHKLINE-A0913889A

PATIENT
  Age: 52 Year
  Sex: Female

DRUGS (1)
  1. NICORETTE [Suspect]
     Indication: EX-TOBACCO USER
     Dates: start: 20110214, end: 20110214

REACTIONS (3)
  - HYPERSENSITIVITY [None]
  - CHEST DISCOMFORT [None]
  - THROAT TIGHTNESS [None]
